FAERS Safety Report 5878006-5 (Version None)
Quarter: 2008Q3

REPORT INFORMATION
  Report Type: 
  Country: None (occurrence: None)
  Receive Date: 20080911
  Receipt Date: 20080904
  Transmission Date: 20090109
  Serious: Yes (Life-Threatening, Other)
  Sender: FDA-Public Use
  Company Number: JP-ELI_LILLY_AND_COMPANY-JP200803005464

PATIENT
  Sex: Male
  Weight: 58 kg

DRUGS (5)
  1. PEMETREXED [Suspect]
     Indication: PLEURAL MESOTHELIOMA MALIGNANT
     Dosage: 750 MG, OTHER
     Route: 042
     Dates: start: 20071016, end: 20071113
  2. CISPLATIN [Suspect]
     Indication: PLEURAL MESOTHELIOMA MALIGNANT
     Dosage: 113 MG, OTHER
     Route: 042
     Dates: start: 20071016, end: 20071113
  3. KYTRIL [Concomitant]
     Indication: PROPHYLAXIS OF NAUSEA AND VOMITING
     Dosage: 3 MG, DAILY (1/D)
     Route: 042
     Dates: start: 20071113, end: 20071117
  4. PANVITAN [Concomitant]
     Dosage: 1 G, DAILY (1/D)
     Route: 048
     Dates: start: 20070829
  5. CYANOCOBALAMIN [Concomitant]
     Dosage: 1 MG, OTHER
     Route: 030
     Dates: start: 20070829, end: 20070829

REACTIONS (3)
  - DISSEMINATED INTRAVASCULAR COAGULATION [None]
  - LARGE INTESTINE PERFORATION [None]
  - SEPSIS [None]
